FAERS Safety Report 5743503-X (Version None)
Quarter: 2008Q2

REPORT INFORMATION
  Report Type: 
  Country: None (occurrence: None)
  Receive Date: 20080520
  Receipt Date: 20080514
  Transmission Date: 20081010
  Serious: Yes (Other)
  Sender: FDA-Public Use
  Company Number: US-JNJFOC-20080305146

PATIENT
  Sex: Female

DRUGS (2)
  1. INVEGA [Suspect]
     Indication: MAJOR DEPRESSION
     Route: 048
  2. INVEGA [Suspect]
     Indication: PSYCHOTIC DISORDER
     Route: 048

REACTIONS (1)
  - WEIGHT INCREASED [None]
